FAERS Safety Report 23210079 (Version 1)
Quarter: 2023Q4

REPORT INFORMATION
  Report Type: Spontaneous
  Country: JP (occurrence: JP)
  Receive Date: 20231121
  Receipt Date: 20231121
  Transmission Date: 20240110
  Serious: Yes (Other)
  Sender: FDA-Public Use
  Company Number: JP-ASTELLAS-2023JP008457

PATIENT
  Sex: Male

DRUGS (2)
  1. PADCEV [Suspect]
     Active Substance: ENFORTUMAB VEDOTIN-EJFV
     Indication: Transitional cell carcinoma
     Dosage: 1.25 MG/KG, ONCE WEEKLY(ONCE WEEKLY ADMINISTERED FOR 3 CONSECUTIVE WEEKS AND WITHDRAWAL AT WEEK 4)
     Route: 041
  2. PADCEV [Suspect]
     Active Substance: ENFORTUMAB VEDOTIN-EJFV
     Dosage: 1.25 MG/KG, ONCE WEEKLY(ONCE WEEKLY ADMINISTERED FOR 3 CONSECUTIVE WEEKS AND WITHDRAWAL AT WEEK 4)
     Route: 041

REACTIONS (4)
  - Myelosuppression [Unknown]
  - Malaise [Not Recovered/Not Resolved]
  - Neutrophil count decreased [Unknown]
  - Hypoaesthesia [Not Recovered/Not Resolved]
